FAERS Safety Report 12261522 (Version 1)
Quarter: 2016Q2

REPORT INFORMATION
  Report Type: Spontaneous
  Country: US (occurrence: None)
  Receive Date: 20160412
  Receipt Date: 20160412
  Transmission Date: 20160815
  Serious: Yes (Other)
  Sender: FDA-Public Use
  Company Number: None

PATIENT
  Age: 59 Year
  Sex: Male
  Weight: 77.61 kg

DRUGS (2)
  1. IMATINIB, 400MG [Suspect]
     Active Substance: IMATINIB
     Indication: CHRONIC MYELOID LEUKAEMIA
     Dates: start: 20160401, end: 20160411
  2. GLEEVEC [Concomitant]
     Active Substance: IMATINIB MESYLATE

REACTIONS (3)
  - Rash [None]
  - Rash pustular [None]
  - Pruritus [None]

NARRATIVE: CASE EVENT DATE: 20160404
